FAERS Safety Report 24016392 (Version 1)
Quarter: 2024Q2

REPORT INFORMATION
  Report Type: Spontaneous
  Country: US (occurrence: US)
  Receive Date: 20240626
  Receipt Date: 20240626
  Transmission Date: 20240716
  Serious: No
  Sender: FDA-Public Use
  Company Number: US-SA-SAC20240624000607

PATIENT
  Sex: Male

DRUGS (1)
  1. KEVZARA [Suspect]
     Active Substance: SARILUMAB
     Dosage: 1 DF, QOW
     Route: 065
     Dates: start: 20240508

REACTIONS (4)
  - Arthritis [Unknown]
  - Essential tremor [Unknown]
  - Hypoacusis [Unknown]
  - Tremor [Unknown]

NARRATIVE: CASE EVENT DATE: 20240101
